FAERS Safety Report 4515174-1 (Version None)
Quarter: 2004Q4

REPORT INFORMATION
  Report Type: 
  Country: None (occurrence: None)
  Receive Date: 20041130
  Receipt Date: 20041130
  Transmission Date: 20050328
  Serious: Yes (Life-Threatening, Hospitalization)
  Sender: FDA-Public Use
  Company Number: None

PATIENT
  Age: 49 Year
  Sex: Male
  Weight: 76.2 kg

DRUGS (8)
  1. THALIDOMIDE 100 MG [Suspect]
     Indication: MULTIPLE MYELOMA
     Dosage: 100 MG PO DAILY
     Route: 048
     Dates: end: 20041126
  2. ALLOPURINOL [Concomitant]
  3. LOPID [Concomitant]
  4. LIPITOR [Concomitant]
  5. GLUCOPHAGE [Concomitant]
  6. VELCADE [Concomitant]
  7. K+ [Concomitant]
  8. MAXZIDE [Concomitant]

REACTIONS (1)
  - PULMONARY EMBOLISM [None]
